FAERS Safety Report 6798246-0 (Version None)
Quarter: 2010Q2

REPORT INFORMATION
  Report Type: 
  Country: None (occurrence: None)
  Receive Date: 20100623
  Receipt Date: 20100613
  Transmission Date: 20101027
  Serious: Yes (Other)
  Sender: FDA-Public Use
  Company Number: 1000014565

PATIENT
  Age: 54 Year
  Sex: Male

DRUGS (10)
  1. LEXAPRO [Suspect]
     Indication: ANXIETY
     Dosage: SEE IMAGE
     Route: 048
     Dates: start: 20100101, end: 20100101
  2. LEXAPRO [Suspect]
     Indication: ANXIETY
     Dosage: SEE IMAGE
     Route: 048
     Dates: start: 20100101, end: 20100101
  3. LEXAPRO [Suspect]
     Indication: ANXIETY
     Dosage: SEE IMAGE
     Route: 048
     Dates: start: 20100101, end: 20100101
  4. LEXAPRO [Suspect]
     Indication: ANXIETY
     Dosage: SEE IMAGE
     Route: 048
     Dates: start: 20090501, end: 20100201
  5. LEXAPRO [Suspect]
     Indication: ANXIETY
     Dosage: SEE IMAGE
     Route: 048
     Dates: start: 20100201, end: 20100201
  6. LEXAPRO [Suspect]
     Indication: ANXIETY
     Dosage: SEE IMAGE
     Route: 048
     Dates: start: 20100201, end: 20100201
  7. LEXAPRO [Suspect]
     Indication: ANXIETY
     Dosage: SEE IMAGE
     Route: 048
     Dates: start: 20100101
  8. LYRICA [Concomitant]
  9. NASACORT [Concomitant]
  10. PROZAC [Concomitant]

REACTIONS (13)
  - CHILLS [None]
  - DRY MOUTH [None]
  - EAR PAIN [None]
  - EXAGGERATED STARTLE RESPONSE [None]
  - HEADACHE [None]
  - HYPOACUSIS [None]
  - NIGHT SWEATS [None]
  - PAIN [None]
  - PANIC ATTACK [None]
  - PARAESTHESIA [None]
  - TEMPOROMANDIBULAR JOINT SYNDROME [None]
  - TINNITUS [None]
  - VISION BLURRED [None]
